FAERS Safety Report 19096604 (Version 1)
Quarter: 2021Q2

REPORT INFORMATION
  Report Type: Spontaneous
  Country: US (occurrence: US)
  Receive Date: 20210406
  Receipt Date: 20210406
  Transmission Date: 20210717
  Serious: No
  Sender: FDA-Public Use
  Company Number: US-BAYER-2021-114926

PATIENT
  Age: 52 Year
  Sex: Female

DRUGS (3)
  1. SYNTHROID [Concomitant]
     Active Substance: LEVOTHYROXINE SODIUM
  2. CLIMARA [Suspect]
     Active Substance: ESTRADIOL
     Dosage: UNK UNK, OW
     Route: 062
     Dates: start: 20210324
  3. LYRICA [Concomitant]
     Active Substance: PREGABALIN

REACTIONS (3)
  - Wrong technique in product usage process [None]
  - Hot flush [None]
  - Product adhesion issue [None]

NARRATIVE: CASE EVENT DATE: 202103
